FAERS Safety Report 9879813 (Version 1)
Quarter: 2014Q1

REPORT INFORMATION
  Report Type: Spontaneous
  Country: AU (occurrence: AU)
  Receive Date: 20140206
  Receipt Date: 20140206
  Transmission Date: 20141002
  Serious: Yes (Death)
  Sender: FDA-Public Use
  Company Number: AU-MYLANLABS-2014S1002006

PATIENT
  Age: 6 Year
  Sex: Male
  Weight: 30 kg

DRUGS (7)
  1. PREDNISOLONE [Suspect]
     Route: 065
  2. SEVOFLURANE [Suspect]
     Indication: INDUCTION OF ANAESTHESIA
     Route: 050
  3. SEVOFLURANE [Suspect]
     Indication: MAINTENANCE OF ANAESTHESIA
     Route: 050
  4. CLONIDINE [Concomitant]
     Route: 065
  5. FENTANYL [Concomitant]
     Route: 065
  6. HYDROCORTISONE [Concomitant]
     Route: 065
  7. CEFAZOLIN [Concomitant]
     Route: 065

REACTIONS (4)
  - Cushingoid [Unknown]
  - Rhabdomyolysis [Fatal]
  - Hyperkalaemia [Fatal]
  - Cardioplegia [Fatal]
